FAERS Safety Report 6534017-8 (Version None)
Quarter: 2010Q1

REPORT INFORMATION
  Report Type: 
  Country: None (occurrence: None)
  Receive Date: 20100112
  Receipt Date: 20100106
  Transmission Date: 20100710
  Serious: Yes (Other)
  Sender: FDA-Public Use
  Company Number: BR-ROCHE-677976

PATIENT

DRUGS (4)
  1. ROACUTAN [Suspect]
     Indication: DRUG USE FOR UNKNOWN INDICATION
     Route: 065
  2. ROACUTAN [Suspect]
     Dosage: DOSE: 20 MG/CAPSULE
     Route: 065
     Dates: end: 20090501
  3. TETRALYSAL [Concomitant]
     Dosage: DURING FIRST ISOTRETINOIN THERAPY
  4. CLINDOXYL [Concomitant]
     Dosage: DURING SECOND ISOTRETINOIN THERPY

REACTIONS (1)
  - BRAIN NEOPLASM [None]
